FAERS Safety Report 21413642 (Version 1)
Quarter: 2022Q4

REPORT INFORMATION
  Report Type: Spontaneous
  Country: US (occurrence: US)
  Receive Date: 20221006
  Receipt Date: 20221006
  Transmission Date: 20230112
  Serious: No
  Sender: FDA-Public Use
  Company Number: US-ELI_LILLY_AND_COMPANY-US202209012801

PATIENT
  Age: 87 Year
  Sex: Female

DRUGS (5)
  1. BASAGLAR [Suspect]
     Active Substance: INSULIN GLARGINE
     Indication: Product used for unknown indication
     Dosage: 16 U, UNKNOWN
     Route: 065
  2. BASAGLAR [Suspect]
     Active Substance: INSULIN GLARGINE
     Indication: Product used for unknown indication
     Dosage: 16 U, UNKNOWN
     Route: 065
  3. BASAGLAR [Suspect]
     Active Substance: INSULIN GLARGINE
     Dosage: 16 U, UNKNOWN
     Route: 065
  4. BASAGLAR [Suspect]
     Active Substance: INSULIN GLARGINE
     Dosage: 16 U, UNKNOWN
     Route: 065
  5. NOVOLOG [Concomitant]
     Active Substance: INSULIN ASPART
     Indication: Product used for unknown indication

REACTIONS (4)
  - Pain [Unknown]
  - Feeling abnormal [Unknown]
  - Blood glucose increased [Unknown]
  - Drug ineffective [Unknown]

NARRATIVE: CASE EVENT DATE: 20220926
